FAERS Safety Report 5234485-8 (Version None)
Quarter: 2007Q1

REPORT INFORMATION
  Report Type: 
  Country: None (occurrence: None)
  Receive Date: 20070209
  Receipt Date: 20070201
  Transmission Date: 20070707
  Serious: Yes (Hospitalization)
  Sender: FDA-Public Use
  Company Number: NO-NOMAADVRE-RELISS-2007-3577

PATIENT
  Sex: Male

DRUGS (5)
  1. ZELDOX (CAPSULES) [Suspect]
     Indication: PARANOIA
     Dates: start: 20060928, end: 20061020
  2. CIPRALEX [Interacting]
     Indication: DEPRESSION
     Dosage: TEXT:10MG-FREQ:DAILY
     Dates: start: 20060919, end: 20061020
  3. ALBYL-E [Concomitant]
     Indication: TRANSIENT ISCHAEMIC ATTACK
     Dosage: TEXT:160MG-FREQ:DAILY
  4. INSULATARD [Concomitant]
     Indication: DIABETES MELLITUS
  5. SIMVASTATIN [Concomitant]
     Indication: HYPERCHOLESTEROLAEMIA
     Dosage: TEXT:20MG-FREQ:DAILY

REACTIONS (3)
  - CEREBROVASCULAR ACCIDENT [None]
  - DRUG INTERACTION [None]
  - THALAMIC INFARCTION [None]
